FAERS Safety Report 17934417 (Version 1)
Quarter: 2020Q2

REPORT INFORMATION
  Report Type: Report from Study
  Country: None (occurrence: BR)
  Receive Date: 20200624
  Receipt Date: 20200624
  Transmission Date: 20200714
  Serious: Yes (Other)
  Sender: FDA-Public Use
  Company Number: BR-ABBVIE-20K-020-3453702-00

PATIENT
  Sex: Male

DRUGS (1)
  1. HUMIRA [Suspect]
     Active Substance: ADALIMUMAB
     Indication: ANKYLOSING SPONDYLITIS
     Route: 058
     Dates: start: 20150614, end: 202001

REACTIONS (3)
  - Bacterial infection [Unknown]
  - Deafness [Unknown]
  - Complication associated with device [Recovering/Resolving]

NARRATIVE: CASE EVENT DATE: 2020
